FAERS Safety Report 9150126 (Version 1)
Quarter: 2013Q1

REPORT INFORMATION
  Report Type: Spontaneous
  Country: US (occurrence: None)
  Receive Date: 20130131
  Receipt Date: 20130131
  Transmission Date: 20140127
  Serious: Yes (Other)
  Sender: FDA-Public Use
  Company Number: E2B_00000566

PATIENT
  Age: 35 Year
  Sex: Male
  Weight: 86.18 kg

DRUGS (3)
  1. LEVETIRACETAM TABLETS 500MG (500 MILLIGRAM) (LEVETIRACETAM) [Suspect]
     Indication: CONVULSION
     Dosage: 1000 MG (500 MG, 2 IN 1 D), PER ORAL
     Route: 048
     Dates: start: 201212
  2. CARBAMAZEPINE (TEGRETOL) [Concomitant]
  3. RANITDINE (ZANTAC) [Concomitant]

REACTIONS (7)
  - Weight decreased [None]
  - Asthenia [None]
  - Delusion [None]
  - Anxiety [None]
  - Renal pain [None]
  - Drug dose omission [None]
  - Convulsion [None]
